FAERS Safety Report 13037044 (Version 6)
Quarter: 2021Q2

REPORT INFORMATION
  Report Type: Other
  Country: CA (occurrence: CA)
  Receive Date: 20161216
  Receipt Date: 20210615
  Transmission Date: 20210716
  Serious: Yes (Hospitalization, Other)
  Sender: FDA-Public Use
  Company Number: CA-APOTEX-2016AP015547

PATIENT
  Age: 41 Year
  Sex: Female

DRUGS (29)
  1. ABILIFY [Interacting]
     Active Substance: ARIPIPRAZOLE
     Dosage: 1 MILLIGRAM
     Route: 065
  2. ORYZANOL [Interacting]
     Active Substance: GAMMA ORYZANOL
     Indication: PRODUCT USED FOR UNKNOWN INDICATION
     Dosage: 1 MILLIGRAM
     Route: 030
  3. DULOXETINE. [Suspect]
     Active Substance: DULOXETINE
     Indication: PRODUCT USED FOR UNKNOWN INDICATION
     Dosage: 30 MILLIGRAM
     Route: 065
  4. ABILIFY MAINTENA [Interacting]
     Active Substance: ARIPIPRAZOLE
     Dosage: 0.5 MILLIGRAM
     Route: 065
  5. ABILIFY MAINTENA [Interacting]
     Active Substance: ARIPIPRAZOLE
     Dosage: 2 MILLIGRAM
     Route: 065
  6. CLONAZEPAM. [Interacting]
     Active Substance: CLONAZEPAM
     Indication: INSOMNIA
     Dosage: UNK UNK, QD
     Route: 065
  7. CLONAZEPAM. [Interacting]
     Active Substance: CLONAZEPAM
     Dosage: 90 MILLIGRAM
     Route: 065
  8. DULOXETINE. [Interacting]
     Active Substance: DULOXETINE
     Dosage: 90 MILLIGRAM
     Route: 065
  9. ABILIFY [Interacting]
     Active Substance: ARIPIPRAZOLE
     Dosage: 5 GRAM
     Route: 065
  10. CLONAZEPAM. [Suspect]
     Active Substance: CLONAZEPAM
     Indication: PRODUCT USED FOR UNKNOWN INDICATION
     Dosage: 1 DOSAGE FORM, QD
     Route: 030
  11. DULOXETINE. [Interacting]
     Active Substance: DULOXETINE
     Dosage: 60 MILLIGRAM
     Route: 065
  12. ABILIFY MAINTENA [Interacting]
     Active Substance: ARIPIPRAZOLE
     Dosage: 1 MILLIGRAM
     Route: 065
  13. CYMBALTA [Interacting]
     Active Substance: DULOXETINE HYDROCHLORIDE
     Dosage: 990 MILLIGRAM
     Route: 065
  14. ABILIFY MAINTENA [Interacting]
     Active Substance: ARIPIPRAZOLE
     Indication: INSOMNIA
     Dosage: UNK
     Route: 030
  15. ABILIFY MAINTENA [Interacting]
     Active Substance: ARIPIPRAZOLE
     Dosage: 1 DOSAGE FORM, QD
     Route: 030
  16. ABILIFY MAINTENA [Interacting]
     Active Substance: ARIPIPRAZOLE
     Dosage: 2 GRAM
     Route: 030
  17. CYMBALTA [Interacting]
     Active Substance: DULOXETINE HYDROCHLORIDE
     Dosage: 60 MILLIGRAM
     Route: 048
  18. CLONAZEPAM. [Interacting]
     Active Substance: CLONAZEPAM
     Dosage: 1 DOSAGE FORM, QD
     Route: 048
  19. QUETIAPINE. [Interacting]
     Active Substance: QUETIAPINE
     Dosage: UNK
     Route: 048
  20. ABILIFY [Interacting]
     Active Substance: ARIPIPRAZOLE
     Indication: PRODUCT USED FOR UNKNOWN INDICATION
     Dosage: UNK
     Route: 030
  21. ABILIFY MAINTENA [Interacting]
     Active Substance: ARIPIPRAZOLE
     Indication: PRODUCT USED FOR UNKNOWN INDICATION
     Dosage: 2 GRAM
     Route: 029
  22. CLONAZEPAM. [Interacting]
     Active Substance: CLONAZEPAM
     Dosage: 1 DOSAGE FORM, QD
     Route: 065
  23. QUETIAPINE. [Interacting]
     Active Substance: QUETIAPINE
     Indication: INSOMNIA
     Dosage: 25 MILLIGRAM, QD
     Route: 048
  24. CYMBALTA [Interacting]
     Active Substance: DULOXETINE HYDROCHLORIDE
     Indication: PRODUCT USED FOR UNKNOWN INDICATION
     Dosage: 30 MILLIGRAM
     Route: 048
  25. ARIPIPRAZOLE. [Suspect]
     Active Substance: ARIPIPRAZOLE
     Indication: PRODUCT USED FOR UNKNOWN INDICATION
     Dosage: 2 GRAM
     Route: 030
  26. RIVOTRIL [Interacting]
     Active Substance: CLONAZEPAM
     Indication: INSOMNIA
     Dosage: 1 DOSAGE FORM, QD
     Route: 065
  27. QUETIAPINE. [Interacting]
     Active Substance: QUETIAPINE
     Dosage: 25 MILLIGRAM
     Route: 048
  28. CYMBALTA [Interacting]
     Active Substance: DULOXETINE HYDROCHLORIDE
     Dosage: 90 MILLIGRAM
     Route: 048
  29. ABILIFY [Interacting]
     Active Substance: ARIPIPRAZOLE
     Dosage: 0.5 MILLIGRAM
     Route: 030

REACTIONS (12)
  - Intentional product use issue [Unknown]
  - Stubbornness [Unknown]
  - Product use issue [Unknown]
  - Abnormal behaviour [Unknown]
  - Off label use [Unknown]
  - Mood altered [Unknown]
  - Thinking abnormal [Unknown]
  - Drug interaction [Unknown]
  - Prescribed underdose [Unknown]
  - Product use in unapproved indication [Unknown]
  - Overdose [Unknown]
  - Prescribed overdose [Unknown]
